FAERS Safety Report 8448506-2 (Version None)
Quarter: 2012Q2

REPORT INFORMATION
  Report Type: 
  Country: None (occurrence: None)
  Receive Date: 20120619
  Receipt Date: 20120605
  Transmission Date: 20120825
  Serious: No
  Sender: FDA-Public Use
  Company Number: US-ASTRAZENECA-2012SE37551

PATIENT
  Age: 58 Year
  Sex: Female
  Weight: 86.2 kg

DRUGS (20)
  1. PRILOSEC [Concomitant]
  2. SEROQUEL [Suspect]
     Route: 048
  3. CLONAZEPAM [Concomitant]
  4. SEROQUEL [Suspect]
     Route: 048
  5. PRASTERONE [Concomitant]
  6. SEROQUEL [Suspect]
     Indication: SOCIAL PHOBIA
     Route: 048
  7. SEROQUEL [Suspect]
     Route: 048
  8. SEROQUEL [Suspect]
     Dosage: GENERIC
     Route: 048
  9. SYNTHROID [Concomitant]
  10. SILYMARIN [Concomitant]
  11. FISH OIL [Concomitant]
  12. SEROQUEL [Suspect]
     Indication: SLEEP DISORDER
     Route: 048
  13. SEROQUEL [Suspect]
     Dosage: GENERIC
     Route: 048
  14. ESTROGEN/PROGESTERONE/TESTOSTERONE CREAM [Concomitant]
  15. VITAMIN D [Concomitant]
  16. PAXIL [Suspect]
     Route: 065
     Dates: start: 19980101
  17. CYTOMEL [Concomitant]
  18. VICODIN [Concomitant]
  19. SEROQUEL [Suspect]
     Route: 048
  20. DEPLIN [Concomitant]

REACTIONS (5)
  - WEIGHT INCREASED [None]
  - HUNGER [None]
  - OFF LABEL USE [None]
  - AMNESIA [None]
  - THERAPEUTIC RESPONSE UNEXPECTED WITH DRUG SUBSTITUTION [None]
